FAERS Safety Report 26055722 (Version 2)
Quarter: 2025Q4

REPORT INFORMATION
  Report Type: Report from Study
  Country: EU (occurrence: EU)
  Receive Date: 20251117
  Receipt Date: 20251119
  Transmission Date: 20260118
  Serious: Yes (Hospitalization)
  Sender: ABBVIE
  Company Number: EU-ABBVIE-6388734

PATIENT
  Age: 74 Year
  Sex: Female

DRUGS (16)
  1. FOSCARBIDOPA\FOSLEVODOPA [Suspect]
     Active Substance: FOSCARBIDOPA\FOSLEVODOPA
     Indication: Parkinson^s disease
     Dosage: SD 0.3 ML CR 0.35 ML/H; CRH 0.37 ML/H, CRN 0.28 ML/H, ED 0.15 ML/H?LAST ADMIN DATE: JUL 2025
     Route: 058
     Dates: start: 20250722
  2. FOSCARBIDOPA\FOSLEVODOPA [Suspect]
     Active Substance: FOSCARBIDOPA\FOSLEVODOPA
     Dosage: SD 0.3 ML CR 0.37 ML/H; CRH 0.39 ML/H, CRN 0.28 ML/H ED 0.15 ML/H,
     Route: 058
     Dates: start: 202507, end: 202507
  3. FOSCARBIDOPA\FOSLEVODOPA [Suspect]
     Active Substance: FOSCARBIDOPA\FOSLEVODOPA
     Dosage: SD: 0.30 ML, CRN: 0.28 ML/H, CR: 0.37 ML/H, CRH: 0.39 ML/H, ED: 0.15 ML,
     Route: 058
     Dates: start: 202507, end: 202507
  4. FOSCARBIDOPA\FOSLEVODOPA [Suspect]
     Active Substance: FOSCARBIDOPA\FOSLEVODOPA
     Dosage: SD: 0.30 ML, CRN: 0.28 ML/H, CR:0.39 ML/H, CRH: 0.41 ML/H, ED: 0.15 ML,
     Route: 058
     Dates: start: 202507, end: 202507
  5. FOSCARBIDOPA\FOSLEVODOPA [Suspect]
     Active Substance: FOSCARBIDOPA\FOSLEVODOPA
     Dosage: DOSE: TO: (SD: 0.30 ML), CRN: 0.28 ML/H, CR:0.41 ML/H, CRH: 0.43 ML/H, ED: 0.15 ML
     Route: 058
     Dates: start: 202507, end: 202507
  6. FOSCARBIDOPA\FOSLEVODOPA [Suspect]
     Active Substance: FOSCARBIDOPA\FOSLEVODOPA
     Dosage: SD: 0.30 ML; CRN: 0.43 ML/H; CR: 0.47 ML/H, CRH: 0.50 ML/H, ED:0.15
     Route: 058
     Dates: start: 2025, end: 2025
  7. FOSCARBIDOPA\FOSLEVODOPA [Suspect]
     Active Substance: FOSCARBIDOPA\FOSLEVODOPA
     Dosage: SD: 0.30 ML; CRN: 0.43 ML/H; CR: 0.76 ML/H, CRH: 0.50 ML/H, ED:0.15
     Route: 058
     Dates: start: 2025, end: 2025
  8. FOSCARBIDOPA\FOSLEVODOPA [Suspect]
     Active Substance: FOSCARBIDOPA\FOSLEVODOPA
     Dosage: SD: 0.30 ML; CRN: 0.43 ML/H; CR: 0.41 ML/H, CRH: 0.50 ML/H, ED:0.15
     Route: 058
     Dates: start: 2025, end: 2025
  9. FOSCARBIDOPA\FOSLEVODOPA [Suspect]
     Active Substance: FOSCARBIDOPA\FOSLEVODOPA
     Dosage: SD: 0.30 ML; CRN: 0.43 ML/H; CR: 0.47 ML; CRH: 0.50 ML/H; ED: 0.15 ML.
     Route: 058
     Dates: start: 2025, end: 2025
  10. CHOLECALCIFEROL [Concomitant]
     Active Substance: CHOLECALCIFEROL
     Indication: Product used for unknown indication
  11. CANDESARTAN [Concomitant]
     Active Substance: CANDESARTAN
     Indication: Product used for unknown indication
  12. POLYETHYLENE GLYCOLS [Concomitant]
     Active Substance: POLYETHYLENE GLYCOLS
     Indication: Product used for unknown indication
  13. PANTOPRAZOLE [Concomitant]
     Active Substance: PANTOPRAZOLE
     Indication: Product used for unknown indication
  14. SOLIFENACIN [Concomitant]
     Active Substance: SOLIFENACIN
     Indication: Product used for unknown indication
  15. METAMIZOLE [Concomitant]
     Active Substance: METAMIZOLE
     Indication: Product used for unknown indication
  16. TAPENTADOL [Concomitant]
     Active Substance: TAPENTADOL
     Indication: Product used for unknown indication

REACTIONS (8)
  - Gastrointestinal infection [Unknown]
  - Hypokinesia [Not Recovered/Not Resolved]
  - Vomiting [Recovered/Resolved]
  - On and off phenomenon [Not Recovered/Not Resolved]
  - Obesity [Not Recovered/Not Resolved]
  - Nausea [Recovered/Resolved]
  - Infusion site abscess [Not Recovered/Not Resolved]
  - Therapeutic product effect incomplete [Not Recovered/Not Resolved]

NARRATIVE: CASE EVENT DATE: 20250101
